FAERS Safety Report 5367285-9 (Version None)
Quarter: 2007Q2

REPORT INFORMATION
  Report Type: 
  Country: None (occurrence: None)
  Receive Date: 20070622
  Receipt Date: 20070117
  Transmission Date: 20071010
  Serious: Yes (Hospitalization, Other)
  Sender: FDA-Public Use
  Company Number: US-BRISTOL-MYERS SQUIBB COMPANY-13657101

PATIENT
  Age: 62 Year
  Sex: Male

DRUGS (3)
  1. PRINIVIL [Suspect]
     Route: 048
  2. POTASSIUM CHLORIDE [Suspect]
     Route: 048
  3. SPIRONOLACTONE [Suspect]
     Route: 048

REACTIONS (1)
  - HYPERKALAEMIA [None]
